FAERS Safety Report 5195349-1 (Version None)
Quarter: 2006Q4

REPORT INFORMATION
  Report Type: 
  Country: None (occurrence: None)
  Receive Date: 20061229
  Receipt Date: 20061219
  Transmission Date: 20070319
  Serious: Yes (Other)
  Sender: FDA-Public Use
  Company Number: US-PFIZER INC-2006155050

PATIENT
  Age: 18 Year
  Sex: Female
  Weight: 54.4 kg

DRUGS (1)
  1. DEPO-PROVERA [Suspect]
     Indication: CONTRACEPTION
     Dates: start: 20060911, end: 20060911

REACTIONS (4)
  - DYSPNOEA [None]
  - PALPITATIONS [None]
  - RASH [None]
  - RHINITIS [None]
